FAERS Safety Report 11792774 (Version 1)
Quarter: 2015Q4

REPORT INFORMATION
  Report Type: Spontaneous
  Country: US (occurrence: US)
  Receive Date: 20151202
  Receipt Date: 20151202
  Transmission Date: 20160305
  Serious: Yes (Other)
  Sender: FDA-Public Use
  Company Number: US-SUN PHARMACEUTICAL INDUSTRIES LTD-2015US-107000

PATIENT
  Age: 14 Year
  Sex: Male
  Weight: 34.8 kg

DRUGS (2)
  1. TESTOSTERONE. [Suspect]
     Active Substance: TESTOSTERONE
     Indication: DELAYED PUBERTY
     Dosage: 50 MG, MONTHLY
     Route: 030
  2. ANASTROZOLE. [Suspect]
     Active Substance: ANASTROZOLE
     Indication: EPIPHYSEAL DISORDER
     Dosage: 1 MG, DAILY
     Route: 065

REACTIONS (2)
  - Therapeutic response unexpected [Unknown]
  - Renal impairment [Recovered/Resolved]
